FAERS Safety Report 15249214 (Version 1)
Quarter: 2018Q3

REPORT INFORMATION
  Report Type: Spontaneous
  Country: IL (occurrence: IL)
  Receive Date: 20180807
  Receipt Date: 20180807
  Transmission Date: 20181010
  Serious: Yes (Death, Hospitalization, Other)
  Sender: FDA-Public Use
  Company Number: IL-UNITED THERAPEUTICS-UNT-2018-008689

PATIENT
  Age: 66 Year
  Sex: Male

DRUGS (1)
  1. REMODULIN [Suspect]
     Active Substance: TREPROSTINIL
     Indication: PULMONARY ARTERIAL HYPERTENSION
     Dosage: RATE OF 0.044 UNITS PER HOUR
     Route: 058
     Dates: start: 20161117

REACTIONS (6)
  - Cyanosis [Recovered/Resolved]
  - Device issue [Recovered/Resolved]
  - Dyspnoea [Unknown]
  - Condition aggravated [Unknown]
  - Oxygen saturation decreased [Recovered/Resolved]
  - Multiple organ dysfunction syndrome [Fatal]

NARRATIVE: CASE EVENT DATE: 20180607
